FAERS Safety Report 7118586-5 (Version None)
Quarter: 2010Q4

REPORT INFORMATION
  Report Type: 
  Country: None (occurrence: None)
  Receive Date: 20101123
  Receipt Date: 20091001
  Transmission Date: 20110411
  Serious: No
  Sender: FDA-Public Use
  Company Number: US-MYLANLABS-2009S1017344

PATIENT
  Sex: Female

DRUGS (1)
  1. NADOLOL [Suspect]
     Indication: BLOOD PRESSURE INCREASED
     Route: 048
     Dates: start: 20090827

REACTIONS (2)
  - SKIN DISCOLOURATION [None]
  - VASODILATATION [None]
